FAERS Safety Report 5541719-9 (Version None)
Quarter: 2007Q4

REPORT INFORMATION
  Report Type: 
  Country: None (occurrence: None)
  Receive Date: 20071129
  Receipt Date: 20070716
  Transmission Date: 20080405
  Serious: Yes (Other)
  Sender: FDA-Public Use
  Company Number: US200707004230

PATIENT
  Sex: Female

DRUGS (3)
  1. ZYPREXA [Suspect]
     Dosage: 5 MG, 7.5 MG, 7.5 MG
     Dates: start: 20030101
  2. ZYPREXA [Suspect]
     Dosage: 5 MG, 7.5 MG, 7.5 MG
     Dates: start: 20070601
  3. ABILIFY [Concomitant]

REACTIONS (1)
  - WEIGHT INCREASED [None]
